FAERS Safety Report 18576208 (Version 1)
Quarter: 2020Q4

REPORT INFORMATION
  Report Type: Spontaneous
  Country: FR (occurrence: FR)
  Receive Date: 20201203
  Receipt Date: 20201203
  Transmission Date: 20210114
  Serious: Yes (Other)
  Sender: FDA-Public Use
  Company Number: FR-MYLANLABS-2020M1098264

PATIENT
  Age: 27 Year
  Sex: Female

DRUGS (6)
  1. LOVENOX [Suspect]
     Active Substance: ENOXAPARIN SODIUM
     Indication: THROMBOSIS PROPHYLAXIS
     Dosage: 4000 INTERNATIONAL UNIT, QD
     Route: 058
     Dates: start: 20200707, end: 20200716
  2. SUFENTANIL [Suspect]
     Active Substance: SUFENTANIL
     Indication: PAIN
     Dosage: UNK
     Route: 042
  3. KETAMINE [Suspect]
     Active Substance: KETAMINE
     Indication: ANAESTHESIA
     Dosage: UNK
     Route: 042
     Dates: start: 20200707, end: 20200714
  4. MIDAZOLAM. [Suspect]
     Active Substance: MIDAZOLAM
     Indication: ANAESTHESIA
     Dosage: UNK
     Route: 042
     Dates: start: 20200707, end: 20200714
  5. DOLIPRANE [Suspect]
     Active Substance: ACETAMINOPHEN
     Indication: PAIN
     Dosage: UNK
     Route: 042
     Dates: start: 20200707, end: 20200716
  6. MILRINONE [Suspect]
     Active Substance: MILRINONE
     Indication: CARDIAC FAILURE CONGESTIVE
     Dosage: UNK
     Route: 042
     Dates: start: 20200707, end: 20200716

REACTIONS (2)
  - Hepatocellular injury [Recovering/Resolving]
  - Cholestasis [Recovering/Resolving]

NARRATIVE: CASE EVENT DATE: 20200710
